FAERS Safety Report 19294973 (Version 1)
Quarter: 2021Q2

REPORT INFORMATION
  Report Type: Spontaneous
  Country: US (occurrence: US)
  Receive Date: 20210524
  Receipt Date: 20210524
  Transmission Date: 20210717
  Serious: No
  Sender: FDA-Public Use
  Company Number: US-BAYER-2021-144009

PATIENT
  Sex: Male

DRUGS (1)
  1. MIRALAX [Suspect]
     Active Substance: POLYETHYLENE GLYCOL 3350
     Dosage: 8 OUNCES IN THE MORNING, 8 OUNCES IN THE NIGHT

REACTIONS (2)
  - Incorrect dose administered [Unknown]
  - Abnormal faeces [Unknown]
